FAERS Safety Report 5717223-1 (Version None)
Quarter: 2008Q2

REPORT INFORMATION
  Report Type: 
  Country: None (occurrence: None)
  Receive Date: 20080424
  Receipt Date: 20080415
  Transmission Date: 20081010
  Serious: Yes (Other)
  Sender: FDA-Public Use
  Company Number: JP-PFIZER INC-2008033912

PATIENT
  Sex: Female
  Weight: 10 kg

DRUGS (2)
  1. ZITHROMAX [Suspect]
     Indication: SINUSITIS
     Route: 048
     Dates: start: 20071214, end: 20071216
  2. ZITHROMAX [Suspect]
     Route: 048
     Dates: start: 20080319, end: 20080320

REACTIONS (3)
  - GINGIVAL BLEEDING [None]
  - ORAL MUCOSAL EXFOLIATION [None]
  - TONGUE BLISTERING [None]
